FAERS Safety Report 9258471 (Version 1)
Quarter: 2013Q1

REPORT INFORMATION
  Report Type: Spontaneous
  Country: US (occurrence: None)
  Receive Date: 20121212
  Receipt Date: 20121212
  Transmission Date: 20140127
  Serious: No
  Sender: FDA-Public Use
  Company Number: 1211USA002166

PATIENT
  Age: 64 Year
  Sex: Male

DRUGS (3)
  1. VICTRELIS [Suspect]
     Indication: CHRONIC HEPATITIS C
     Route: 048
     Dates: start: 201209
  2. PEGASYS (PEGINTERFERON ALFA 2A) [Concomitant]
  3. RIBASPHERE (RIBAVIRIN) [Concomitant]

REACTIONS (1)
  - Arthralgia [None]
